FAERS Safety Report 8528786-5 (Version None)
Quarter: 2012Q3

REPORT INFORMATION
  Report Type: 
  Country: None (occurrence: None)
  Receive Date: 20120723
  Receipt Date: 20120711
  Transmission Date: 20120928
  Serious: No
  Sender: FDA-Public Use
  Company Number: US-009507513-1207USA003042

PATIENT

DRUGS (4)
  1. CARISOPRODOL [Concomitant]
  2. SINEMET CR [Suspect]
     Dosage: 25/100MG, TID
     Route: 048
     Dates: start: 20120501, end: 20120501
  3. SINEMET CR [Suspect]
     Indication: PARKINSON'S DISEASE
     Dosage: 25/250MG, Q4H
     Route: 048
     Dates: start: 20120501, end: 20120501
  4. IBUPROFEN [Concomitant]

REACTIONS (6)
  - FEELING JITTERY [None]
  - ARTHRALGIA [None]
  - LETHARGY [None]
  - OVERDOSE [None]
  - MEMORY IMPAIRMENT [None]
  - DRUG INEFFECTIVE [None]
